FAERS Safety Report 6754381-4 (Version None)
Quarter: 2010Q2

REPORT INFORMATION
  Report Type: 
  Country: None (occurrence: None)
  Receive Date: 20100520
  Receipt Date: 20091123
  Transmission Date: 20101027
  Serious: Yes (Disabling, Other)
  Sender: FDA-Public Use
  Company Number: 2009207713

PATIENT
  Age: 60 Year
  Sex: Female
  Weight: 73 kg

DRUGS (8)
  1. PROVERA [Suspect]
     Indication: HORMONE REPLACEMENT THERAPY
     Dosage: 5 MG, ORAL
     Route: 048
     Dates: start: 19860901, end: 20020901
  2. PREMARIN [Suspect]
     Indication: HORMONE REPLACEMENT THERAPY
     Dosage: 0.625 MG
     Dates: start: 19860901, end: 20020901
  3. LOVASTATIN [Concomitant]
  4. VERAPAMIL [Concomitant]
  5. DYAZIDE [Concomitant]
  6. POTASSIUM CHLORIDE [Concomitant]
  7. ZANTAC 150 [Concomitant]
  8. XANAX [Concomitant]

REACTIONS (1)
  - BREAST CANCER FEMALE [None]
